FAERS Safety Report 6370809-6 (Version None)
Quarter: 2009Q3

REPORT INFORMATION
  Report Type: 
  Country: None (occurrence: None)
  Receive Date: 20090923
  Receipt Date: 20070612
  Transmission Date: 20100115
  Serious: No
  Sender: FDA-Public Use
  Company Number: US-ASTRAZENECA-2006UW24705

PATIENT
  Age: 45 Year
  Sex: Male
  Weight: 127 kg

DRUGS (11)
  1. SEROQUEL [Suspect]
     Indication: SCHIZOPHRENIA
     Route: 048
     Dates: start: 20020101
  2. SEROQUEL [Suspect]
     Dosage: 100-300 MG
     Route: 048
  3. RANITIDINE [Concomitant]
  4. NAPROXEN [Concomitant]
  5. VERAPAMIL [Concomitant]
  6. METFORMIN HCL [Concomitant]
  7. CLONIDINE [Concomitant]
  8. MOTRIN [Concomitant]
  9. TYLENOL (CAPLET) [Concomitant]
  10. ATORVASTATIN [Concomitant]
  11. LORATADINE [Concomitant]

REACTIONS (13)
  - ARTHRALGIA [None]
  - BLOOD CHOLESTEROL INCREASED [None]
  - DIABETES MELLITUS [None]
  - DIZZINESS [None]
  - GLYCOSURIA [None]
  - HYPERCHOLESTEROLAEMIA [None]
  - HYPERGLYCAEMIA [None]
  - HYPERLIPIDAEMIA [None]
  - MICROALBUMINURIA [None]
  - MUSCULOSKELETAL PAIN [None]
  - NECK PAIN [None]
  - OSTEOARTHRITIS [None]
  - TYPE 2 DIABETES MELLITUS [None]
